FAERS Safety Report 12180419 (Version 1)
Quarter: 2016Q1

REPORT INFORMATION
  Report Type: Spontaneous
  Country: US (occurrence: None)
  Receive Date: 20160314
  Receipt Date: 20160314
  Transmission Date: 20160526
  Serious: Yes (Life-Threatening)
  Sender: FDA-Public Use
  Company Number: None

PATIENT
  Age: 69 Year
  Sex: Female
  Weight: 66.68 kg

DRUGS (8)
  1. CPAP DEVICE [Concomitant]
  2. VICTOZA [Suspect]
     Active Substance: LIRAGLUTIDE
     Indication: BLOOD GLUCOSE ABNORMAL
     Dosage: ONCE DAILY INJECTION
     Dates: start: 20160212, end: 20160213
  3. VITAMIN B12 [Concomitant]
     Active Substance: CYANOCOBALAMIN
  4. VITAMIN D3 [Concomitant]
     Active Substance: CHOLECALCIFEROL
  5. RED RICE YEAST [Concomitant]
     Active Substance: DIETARY SUPPLEMENT
  6. ADRENAL SUPPORT [Concomitant]
     Active Substance: AMERICAN GINSENG\ARSENIC TRIOXIDE\CONVALLARIA MAJALIS\CORTISONE ACETATE\CROTALUS HORRIDUS HORRIDUS VENOM\EPINEPHRINE\HOPS\IRON\OYSTER SHELL CALCIUM CARBONATE, CRUDE\PHOSPHORIC ACID\PHOSPHORUS\SELENIUM\SEPIA OFFICINALIS JUICE\STRYCHNOS NUX-VOMICA SEED\THYROID, PORCINE
  7. MULTIPLE VITAMIN [Concomitant]
     Active Substance: VITAMINS
  8. CLOBETESOL OINTMENT [Concomitant]

REACTIONS (7)
  - Rash [None]
  - Nausea [None]
  - Chills [None]
  - Vomiting [None]
  - Asthenia [None]
  - Hyperhidrosis [None]
  - Headache [None]

NARRATIVE: CASE EVENT DATE: 20160212
